FAERS Safety Report 16906722 (Version 1)
Quarter: 2019Q4

REPORT INFORMATION
  Report Type: Spontaneous
  Country: US (occurrence: US)
  Receive Date: 20191011
  Receipt Date: 20191011
  Transmission Date: 20200122
  Serious: No
  Sender: FDA-Public Use
  Company Number: US-009507513-1908USA011371

PATIENT
  Age: 24 Year
  Sex: Female
  Weight: 93.42 kg

DRUGS (1)
  1. NEXPLANON [Suspect]
     Active Substance: ETONOGESTREL
     Indication: CONTRACEPTION
     Dosage: 68 MILLIGRAM, 1 IMPLANT, EVER 3 YEARS (Q3Y)
     Route: 059
     Dates: start: 20170620

REACTIONS (4)
  - Pruritus [Not Recovered/Not Resolved]
  - Device breakage [Not Recovered/Not Resolved]
  - Fall [Unknown]
  - Device kink [Not Recovered/Not Resolved]

NARRATIVE: CASE EVENT DATE: 20190819
